FAERS Safety Report 6768577-9 (Version None)
Quarter: 2010Q2

REPORT INFORMATION
  Report Type: 
  Country: None (occurrence: None)
  Receive Date: 20100614
  Receipt Date: 20100610
  Transmission Date: 20101027
  Serious: Yes (Death)
  Sender: FDA-Public Use
  Company Number: FR-ASTRAZENECA-2010SE27188

PATIENT
  Age: 89 Year
  Sex: Male

DRUGS (9)
  1. XYLOCAINE [Suspect]
     Route: 065
     Dates: start: 20100325
  2. CRESTOR [Concomitant]
     Route: 048
     Dates: start: 20100303
  3. CARDENSIEL [Concomitant]
     Route: 048
     Dates: start: 20100305
  4. COVERSYL [Concomitant]
     Route: 048
     Dates: start: 20100308
  5. INIPOMP [Concomitant]
     Route: 048
     Dates: start: 20100303
  6. LASIX [Concomitant]
     Route: 048
     Dates: start: 20100324
  7. CALCIPARINE [Concomitant]
     Route: 058
     Dates: start: 20100315
  8. PLAVIX [Concomitant]
     Route: 048
     Dates: end: 20100315
  9. KARDEGIC [Concomitant]
     Route: 048
     Dates: end: 20100315

REACTIONS (1)
  - CARDIAC ARREST [None]
